FAERS Safety Report 5056416-6 (Version None)
Quarter: 2006Q3

REPORT INFORMATION
  Report Type: 
  Country: None (occurrence: None)
  Receive Date: 20060717
  Receipt Date: 20060704
  Transmission Date: 20061208
  Serious: Yes (Hospitalization)
  Sender: FDA-Public Use
  Company Number: 2006083085

PATIENT
  Sex: Female

DRUGS (3)
  1. SILDENAFIL (PAH)  (SILDENAFIL) [Suspect]
     Indication: PULMONARY HYPERTENSION
  2. TRACLEER [Concomitant]
  3. ALL OTHER THERAPEUTIC PRODUCTS (ALL OTHER THERAPEUTIC PRODUCTS) [Concomitant]

REACTIONS (2)
  - DIARRHOEA [None]
  - VOMITING [None]
